FAERS Safety Report 4984001-0 (Version None)
Quarter: 2006Q1

REPORT INFORMATION
  Report Type: 
  Country: None (occurrence: None)
  Receive Date: 20060301
  Receipt Date: 20051102
  Transmission Date: 20060701
  Serious: No
  Sender: FDA-Public Use
  Company Number: S05-USA-04839-01

PATIENT
  Age: 62 Year
  Sex: Male

DRUGS (6)
  1. NAMENDA [Suspect]
     Indication: DEMENTIA
     Dosage: 10 MG BID PO
     Route: 048
     Dates: start: 20040101
  2. SIMVASTATIN [Concomitant]
  3. EFFEXOR [Concomitant]
  4. FELODIPINE [Concomitant]
  5. BUPROPION [Concomitant]
  6. NIACIN [Concomitant]

REACTIONS (3)
  - BRUXISM [None]
  - INSOMNIA [None]
  - URINARY INCONTINENCE [None]
